FAERS Safety Report 20223898 (Version 2)
Quarter: 2022Q3

REPORT INFORMATION
  Report Type: Spontaneous
  Country: US (occurrence: US)
  Receive Date: 20211223
  Receipt Date: 20220816
  Transmission Date: 20221026
  Serious: Yes (Other)
  Sender: FDA-Public Use
  Company Number: US-GILEAD-2021-0561988

PATIENT
  Age: 47 Year
  Sex: Male
  Weight: 86.168 kg

DRUGS (25)
  1. ATRIPLA [Suspect]
     Active Substance: EFAVIRENZ\EMTRICITABINE\TENOFOVIR DISOPROXIL FUMARATE
     Indication: HIV infection
     Dosage: UNK
     Route: 048
     Dates: start: 201402, end: 201710
  2. GENVOYA [Concomitant]
     Active Substance: COBICISTAT\ELVITEGRAVIR\EMTRICITABINE\TENOFOVIR ALAFENAMIDE FUMARATE
  3. ACETAMINOPHEN AND CODEINE [Concomitant]
     Active Substance: ACETAMINOPHEN\CODEINE PHOSPHATE
  4. ALBUTEROL [Concomitant]
     Active Substance: ALBUTEROL
  5. ATORVASTATIN [Concomitant]
     Active Substance: ATORVASTATIN
  6. CANNABIS SATIVA SUBSP. INDICA TOP [Concomitant]
     Active Substance: CANNABIS SATIVA SUBSP. INDICA TOP
  7. CLOPIDOGREL [Concomitant]
     Active Substance: CLOPIDOGREL BISULFATE
  8. CYCLOBENZAPRINE [Concomitant]
     Active Substance: CYCLOBENZAPRINE
  9. EZETIMIBE [Concomitant]
     Active Substance: EZETIMIBE
  10. FISH OIL [Concomitant]
     Active Substance: FISH OIL
  11. HYDROXYZINE [Concomitant]
     Active Substance: HYDROXYZINE HYDROCHLORIDE
  12. JARDIANCE [Concomitant]
     Active Substance: EMPAGLIFLOZIN
  13. LISINOPRIL [Concomitant]
     Active Substance: LISINOPRIL
  14. LOSARTAN [Concomitant]
     Active Substance: LOSARTAN
  15. ASPIRIN [Concomitant]
     Active Substance: ASPIRIN
  16. LYRICA [Concomitant]
     Active Substance: PREGABALIN
  17. METFORMIN [Concomitant]
     Active Substance: METFORMIN HYDROCHLORIDE
  18. METOPROLOL [Concomitant]
     Active Substance: METOPROLOL
  19. NIACIN [Concomitant]
     Active Substance: NIACIN
  20. NITROGLYCERIN [Concomitant]
     Active Substance: NITROGLYCERIN
  21. OZEMPIC [Concomitant]
     Active Substance: SEMAGLUTIDE
  22. PREGABALIN [Concomitant]
     Active Substance: PREGABALIN
  23. ROSUVASTATIN [Concomitant]
     Active Substance: ROSUVASTATIN
  24. SIMVASTATIN [Concomitant]
     Active Substance: SIMVASTATIN
  25. WELLBUTRIN [Concomitant]
     Active Substance: BUPROPION HYDROCHLORIDE

REACTIONS (12)
  - Osteoporosis [Unknown]
  - Spinal fracture [Unknown]
  - Bone demineralisation [Unknown]
  - Pain [Not Recovered/Not Resolved]
  - Emotional distress [Not Recovered/Not Resolved]
  - Anxiety [Not Recovered/Not Resolved]
  - Anhedonia [Not Recovered/Not Resolved]
  - Osteopenia [Not Recovered/Not Resolved]
  - Arthralgia [Unknown]
  - Arthritis [Unknown]
  - Gait disturbance [Not Recovered/Not Resolved]
  - Depression [Not Recovered/Not Resolved]

NARRATIVE: CASE EVENT DATE: 20180601
